FAERS Safety Report 6095749-1 (Version None)
Quarter: 2009Q1

REPORT INFORMATION
  Report Type: 
  Country: None (occurrence: None)
  Receive Date: 20090227
  Receipt Date: 20080609
  Transmission Date: 20090719
  Serious: No
  Sender: FDA-Public Use
  Company Number: A0731978A

PATIENT
  Age: 54 Year
  Sex: Female

DRUGS (16)
  1. LAMICTAL [Suspect]
     Indication: BIPOLAR DISORDER
     Dosage: 200MG PER DAY
     Route: 048
  2. EFFEXOR XR [Concomitant]
  3. NAPROSYN [Concomitant]
  4. CLONAZEPAM [Concomitant]
  5. VERAPAMIL [Concomitant]
  6. MORPHINE [Concomitant]
  7. SINGULAIR [Concomitant]
  8. RANITIDINE [Concomitant]
  9. VICODIN [Concomitant]
  10. NEURONTIN [Concomitant]
  11. THIORIDAZINE HCL [Concomitant]
  12. FLEXERIL [Concomitant]
  13. CALCIUM [Concomitant]
  14. MAGNESIUM SULFATE [Concomitant]
  15. CENTRUM SILVER [Concomitant]
  16. ASPIRIN [Concomitant]

REACTIONS (1)
  - VISION BLURRED [None]
